FAERS Safety Report 20819763 (Version 2)
Quarter: 2022Q2

REPORT INFORMATION
  Report Type: Report from Study
  Country: US (occurrence: US)
  Receive Date: 20220512
  Receipt Date: 20220624
  Transmission Date: 20220720
  Serious: Yes (Death, Other)
  Sender: FDA-Public Use
  Company Number: US-UCBSA-2022026572

PATIENT
  Sex: Female

DRUGS (1)
  1. LACOSAMIDE [Suspect]
     Active Substance: LACOSAMIDE
     Indication: Seizure
     Dosage: 10MG/ML-TAKE 30MLS QAM AND 35MLS QPM
     Dates: end: 20220421

REACTIONS (2)
  - Brain neoplasm malignant [Fatal]
  - Incorrect dose administered [Unknown]
